FAERS Safety Report 7424134-2 (Version None)
Quarter: 2011Q2

REPORT INFORMATION
  Report Type: 
  Country: None (occurrence: None)
  Receive Date: 20110419
  Receipt Date: 20110414
  Transmission Date: 20111010
  Serious: Yes (Other)
  Sender: FDA-Public Use
  Company Number: CHPA2011US05442

PATIENT
  Age: 18 Year
  Sex: Male

DRUGS (1)
  1. NODOZ [Suspect]
     Dosage: UNK, ONCE/SINGLE
     Route: 045
     Dates: start: 20110413, end: 20110413

REACTIONS (3)
  - WRONG TECHNIQUE IN DRUG USAGE PROCESS [None]
  - INCORRECT ROUTE OF DRUG ADMINISTRATION [None]
  - INTENTIONAL DRUG MISUSE [None]
